FAERS Safety Report 7308237-9 (Version None)
Quarter: 2011Q1

REPORT INFORMATION
  Report Type: 
  Country: None (occurrence: None)
  Receive Date: 20110223
  Receipt Date: 20110216
  Transmission Date: 20110831
  Serious: Yes (Hospitalization)
  Sender: FDA-Public Use
  Company Number: A0784440A

PATIENT
  Age: 62 Year
  Sex: Male
  Weight: 108.2 kg

DRUGS (11)
  1. METFORMIN [Concomitant]
     Dates: end: 20050916
  2. AVANDAMET [Suspect]
     Indication: TYPE 2 DIABETES MELLITUS
     Route: 048
     Dates: start: 20050916, end: 20080101
  3. TRAZODONE HCL [Concomitant]
  4. AVANDIA [Suspect]
     Indication: TYPE 2 DIABETES MELLITUS
     Dosage: 4MG PER DAY
     Route: 048
     Dates: start: 20021007, end: 20060101
  5. CIALIS [Concomitant]
  6. FLOMAX [Concomitant]
  7. ASPIRIN [Concomitant]
  8. PAXIL CR [Concomitant]
  9. ACCUPRIL [Concomitant]
  10. INSULIN [Concomitant]
  11. LEVITRA [Concomitant]

REACTIONS (4)
  - CORONARY ARTERY DISEASE [None]
  - CARDIAC FAILURE CONGESTIVE [None]
  - ISCHAEMIC CARDIOMYOPATHY [None]
  - MYOCARDIAL INFARCTION [None]
